FAERS Safety Report 7445117-2 (Version None)
Quarter: 2011Q2

REPORT INFORMATION
  Report Type: 
  Country: None (occurrence: None)
  Receive Date: 20110427
  Receipt Date: 20110427
  Transmission Date: 20111010
  Serious: Yes (Hospitalization)
  Sender: FDA-Public Use
  Company Number: None

PATIENT
  Age: 66 Year
  Sex: Male
  Weight: 112 kg

DRUGS (2)
  1. SIMVASTATIN [Suspect]
     Dosage: 80 MG HS PO
     Route: 048
     Dates: start: 20091129, end: 20101017
  2. GEMFIBROZIL [Suspect]
     Dosage: 600 MG BID PO
     Route: 048
     Dates: start: 20090921, end: 20101017

REACTIONS (5)
  - RHABDOMYOLYSIS [None]
  - MYALGIA [None]
  - ASTHENIA [None]
  - LETHARGY [None]
  - FATIGUE [None]
